FAERS Safety Report 22615422 (Version 1)
Quarter: 2023Q2

REPORT INFORMATION
  Report Type: Spontaneous
  Country: US (occurrence: US)
  Receive Date: 20230619
  Receipt Date: 20230619
  Transmission Date: 20230722
  Serious: No
  Sender: FDA-Public Use
  Company Number: US-SA-SAC20230615001582

PATIENT
  Age: 38 Year
  Sex: Female
  Weight: 71.6 kg

DRUGS (17)
  1. FABRAZYME [Suspect]
     Active Substance: AGALSIDASE BETA
     Indication: Fabry^s disease
     Dosage: 70 MG, QOW
     Route: 042
     Dates: start: 20230404
  2. POTASSIUM [Concomitant]
     Active Substance: POTASSIUM
  3. EPINEPHRINE [Concomitant]
     Active Substance: EPINEPHRINE
  4. CALCIUM\CHOLECALCIFEROL [Concomitant]
     Active Substance: CALCIUM\CHOLECALCIFEROL
  5. BIOTIN [Concomitant]
     Active Substance: BIOTIN
  6. BUSPIRONE HCL [Concomitant]
     Active Substance: BUSPIRONE HYDROCHLORIDE
  7. HYDROCORTISONE [Concomitant]
     Active Substance: HYDROCORTISONE
  8. GABAPENTIN [Concomitant]
     Active Substance: GABAPENTIN
  9. STERILE WATER FOR INJECTION [Concomitant]
     Active Substance: WATER
  10. ACETAMINOPHEN [Concomitant]
     Active Substance: ACETAMINOPHEN
  11. SODIUM CHLORIDE [Concomitant]
     Active Substance: SODIUM CHLORIDE
  12. LORATADINE [Concomitant]
     Active Substance: LORATADINE
  13. VITAMIN C [Concomitant]
     Active Substance: ASCORBIC ACID
  14. ELIQUIS [Concomitant]
     Active Substance: APIXABAN
  15. LIDOCAINE [Concomitant]
     Active Substance: LIDOCAINE
  16. SODIUM CHLORIDE [Concomitant]
     Active Substance: SODIUM CHLORIDE
  17. CRANBERRY [Concomitant]
     Active Substance: CRANBERRY

REACTIONS (2)
  - Migraine [Recovered/Resolved]
  - Fatigue [Unknown]

NARRATIVE: CASE EVENT DATE: 20230601
